FAERS Safety Report 15211593 (Version 1)
Quarter: 2018Q3

REPORT INFORMATION
  Report Type: Spontaneous
  Country: US (occurrence: US)
  Receive Date: 20180702
  Receipt Date: 20180702
  Transmission Date: 20181010
  Serious: Yes (Disabling)
  Sender: FDA-Public Use
  Company Number: None

PATIENT
  Age: 57 Year
  Sex: Female
  Weight: 70.2 kg

DRUGS (1)
  1. BOTOX [Suspect]
     Active Substance: ONABOTULINUMTOXINA

REACTIONS (13)
  - Tinnitus [None]
  - Impaired work ability [None]
  - Encephalitis [None]
  - Tremor [None]
  - Balance disorder [None]
  - Amenorrhoea [None]
  - Eye movement disorder [None]
  - Blood pressure increased [None]
  - Memory impairment [None]
  - Dizziness [None]
  - Nausea [None]
  - Bedridden [None]
  - Fatigue [None]

NARRATIVE: CASE EVENT DATE: 20171009
